FAERS Safety Report 5951055-4 (Version None)
Quarter: 2008Q4

REPORT INFORMATION
  Report Type: 
  Country: None (occurrence: None)
  Receive Date: 20081110
  Receipt Date: 20080814
  Transmission Date: 20090506
  Serious: Yes (Other)
  Sender: FDA-Public Use
  Company Number: TPH-00114

PATIENT
  Age: 23 Year
  Sex: Female

DRUGS (2)
  1. MICROVLAR LOT NUMBER: 2789A [Suspect]
     Indication: CONTRACEPTION
     Dosage: ORAL
     Route: 048
     Dates: start: 20060101
  2. TRIQUILAR [Suspect]
     Indication: DRUG USE FOR UNKNOWN INDICATION
     Dosage: ORAL
     Route: 048

REACTIONS (3)
  - INCREASED APPETITE [None]
  - NAUSEA [None]
  - SOMNOLENCE [None]
